FAERS Safety Report 25984128 (Version 3)
Quarter: 2025Q4

REPORT INFORMATION
  Report Type: Spontaneous
  Country: US (occurrence: None)
  Receive Date: 20251031
  Receipt Date: 20251203
  Transmission Date: 20260118
  Serious: No
  Sender: INCYTE
  Company Number: US-INCYTE CORPORATION-2025IN011685

PATIENT
  Age: 64 Year

DRUGS (4)
  1. JAKAFI [Suspect]
     Active Substance: RUXOLITINIB
     Indication: Osteoarthritis
     Dosage: 20 MILLIGRAM, BID
  2. JAKAFI [Suspect]
     Active Substance: RUXOLITINIB
     Indication: Essential thrombocythaemia
  3. JAKAFI [Suspect]
     Active Substance: RUXOLITINIB
     Indication: Asthma
  4. HYRIMOZ [Concomitant]
     Active Substance: ADALIMUMAB-ADAZ
     Indication: Product used for unknown indication
     Dosage: UNK (PEN)
     Route: 065

REACTIONS (3)
  - Headache [Recovering/Resolving]
  - Constipation [Unknown]
  - Off label use [Unknown]
